FAERS Safety Report 13670407 (Version 1)
Quarter: 2017Q2

REPORT INFORMATION
  Report Type: Spontaneous
  Country: AU (occurrence: AU)
  Receive Date: 20170620
  Receipt Date: 20170620
  Transmission Date: 20170830
  Serious: Yes (Death)
  Sender: FDA-Public Use
  Company Number: AU-INSYS THERAPEUTICS, INC-INS201706-000381

PATIENT
  Age: 52 Year
  Sex: Male

DRUGS (8)
  1. ALCOHOL. [Suspect]
     Active Substance: ALCOHOL
  2. HEROIN [Suspect]
     Active Substance: DIAMORPHINE
  3. METHAMPHETAMINE [Suspect]
     Active Substance: METHAMPHETAMINE
  4. FENTANYL. [Suspect]
     Active Substance: FENTANYL
     Indication: PRODUCT USED FOR UNKNOWN INDICATION
  5. OXAZEPAM. [Suspect]
     Active Substance: OXAZEPAM
  6. TETRAHYDRO CANNABIDIOL [Suspect]
     Active Substance: DRONABINOL
  7. DIAZEPAM. [Suspect]
     Active Substance: DIAZEPAM
  8. TEMAZEPAM. [Suspect]
     Active Substance: TEMAZEPAM

REACTIONS (4)
  - Overdose [Fatal]
  - Drug use disorder [None]
  - Toxicity to various agents [Fatal]
  - Loss of consciousness [None]

NARRATIVE: CASE EVENT DATE: 201511
